FAERS Safety Report 8029052-7 (Version None)
Quarter: 2012Q1

REPORT INFORMATION
  Report Type: 
  Country: None (occurrence: None)
  Receive Date: 20120106
  Receipt Date: 20120105
  Transmission Date: 20120608
  Serious: Yes (Other)
  Sender: FDA-Public Use
  Company Number: BR-JNJFOC-20120101935

PATIENT
  Sex: Male

DRUGS (2)
  1. UNSPECIFIED ANXIOLYTIC [Concomitant]
     Indication: ANXIETY
     Route: 065
  2. NICORETTE [Suspect]
     Indication: SMOKING CESSATION THERAPY
     Dosage: SEVERAL GUMS EACH DAY, FOR TWELVE YEARS
     Route: 048
     Dates: start: 20000101

REACTIONS (4)
  - DEPENDENCE [None]
  - INTENTIONAL DRUG MISUSE [None]
  - NAUSEA [None]
  - DIZZINESS [None]
